FAERS Safety Report 24090417 (Version 1)
Quarter: 2024Q3

REPORT INFORMATION
  Report Type: Spontaneous
  Country: BE (occurrence: BE)
  Receive Date: 20240715
  Receipt Date: 20240715
  Transmission Date: 20241017
  Serious: No
  Sender: PIERRE FABRE MEDICAMENT
  Company Number: BE-PFM-2021-07552

PATIENT
  Age: 3 Day
  Sex: Male

DRUGS (2)
  1. PROPRANOLOL [Suspect]
     Active Substance: PROPRANOLOL HYDROCHLORIDE
     Indication: Intracranial haemangioma
     Dosage: 2 MG/KG, PER DAY, DAY FOR 2 WEEKS
     Route: 065
  2. PROPRANOLOL [Suspect]
     Active Substance: PROPRANOLOL HYDROCHLORIDE
     Dosage: 3 MG/KG, PER DAY, DAY FOR 14 MONTHS
     Route: 065

REACTIONS (4)
  - Product administered to patient of inappropriate age [Unknown]
  - Drug titration error [None]
  - Product use issue [Unknown]
  - Off label use [Unknown]
